FAERS Safety Report 7434864-4 (Version None)
Quarter: 2011Q2

REPORT INFORMATION
  Report Type: 
  Country: None (occurrence: None)
  Receive Date: 20110425
  Receipt Date: 20110416
  Transmission Date: 20111010
  Serious: Yes (Life-Threatening, Hospitalization)
  Sender: FDA-Public Use
  Company Number: FR-ROCHE-678692

PATIENT
  Sex: Female
  Weight: 62 kg

DRUGS (2)
  1. LAPATINIB [Suspect]
     Dosage: 750 MG, Q21D
     Route: 048
     Dates: start: 20090623
  2. CAPECITABINE [Suspect]
     Dosage: 1500 MG, Q14D
     Route: 048
     Dates: start: 20090623

REACTIONS (1)
  - GENERAL PHYSICAL CONDITION ABNORMAL [None]
